FAERS Safety Report 8980520 (Version 1)
Quarter: 2012Q4

REPORT INFORMATION
  Report Type: 
  Country: JP (occurrence: JP)
  Receive Date: 20121221
  Receipt Date: 20121221
  Transmission Date: 20130627
  Serious: Yes (Other)
  Sender: FDA-Public Use
  Company Number: JP-ASTRAZENECA-2012SE87403

PATIENT
  Age: 48 Year
  Sex: Female

DRUGS (2)
  1. ZOLADEX [Suspect]
     Indication: BREAST CANCER
     Route: 058
  2. NOLVADEX [Suspect]
     Indication: BREAST CANCER
     Route: 048

REACTIONS (2)
  - Retinal detachment [Recovered/Resolved]
  - Retinopathy [Recovered/Resolved]
